FAERS Safety Report 6294334-6 (Version None)
Quarter: 2009Q3

REPORT INFORMATION
  Report Type: 
  Country: None (occurrence: None)
  Receive Date: 20090803
  Receipt Date: 20090720
  Transmission Date: 20100115
  Serious: Yes (Other)
  Sender: FDA-Public Use
  Company Number: US-PFIZER INC-2006050817

PATIENT
  Age: 55 Year

DRUGS (2)
  1. XALATAN [Suspect]
     Indication: GLAUCOMA
     Route: 047
     Dates: start: 20011201
  2. RISPERDAL [Concomitant]
     Route: 065

REACTIONS (6)
  - BLINDNESS [None]
  - FALL [None]
  - HYPERTENSION [None]
  - RETINAL DETACHMENT [None]
  - VISUAL FIELD DEFECT [None]
  - VISUAL IMPAIRMENT [None]
